FAERS Safety Report 8094855-X (Version None)
Quarter: 2012Q1

REPORT INFORMATION
  Report Type: 
  Country: None (occurrence: None)
  Receive Date: 20120129
  Receipt Date: 20120116
  Transmission Date: 20120608
  Serious: Yes (Hospitalization)
  Sender: FDA-Public Use
  Company Number: AU-MYLANLABS-2012S1001474

PATIENT
  Age: 47 Year
  Sex: Male

DRUGS (6)
  1. PROMETHAZINE [Suspect]
     Indication: MULTIPLE DRUG OVERDOSE
     Dosage: AN EXCESSIVE AMOUNT
     Route: 065
  2. BACLOFEN [Suspect]
     Indication: MULTIPLE DRUG OVERDOSE
     Dosage: PRESCRIBED DOSE OF BACLOFEN (30MG DAILY)
     Route: 065
  3. BACLOFEN [Suspect]
     Dosage: 30MG IN 3 DIVIDED DOSES
     Route: 065
  4. BACLOFEN [Suspect]
     Indication: ALCOHOLISM
     Dosage: PRESCRIBED DOSE OF BACLOFEN (30MG DAILY)
     Route: 065
  5. BACLOFEN [Suspect]
     Dosage: 30MG IN 3 DIVIDED DOSES
     Route: 065
  6. VENLAFAXINE [Concomitant]
     Indication: DEPRESSION
     Dosage: 150MG
     Route: 065

REACTIONS (3)
  - MULTIPLE DRUG OVERDOSE [None]
  - CONFUSIONAL STATE [None]
  - DISORIENTATION [None]
